FAERS Safety Report 8086203-6 (Version None)
Quarter: 2012Q1

REPORT INFORMATION
  Report Type: 
  Country: None (occurrence: None)
  Receive Date: 20120128
  Receipt Date: 20110415
  Transmission Date: 20120608
  Serious: No
  Sender: FDA-Public Use
  Company Number: US-ABBOTT-11P-163-0719545-00

PATIENT
  Age: 62 Year
  Sex: Female

DRUGS (16)
  1. NITROGLYCERIN [Concomitant]
     Indication: CHEST PAIN
  2. REDUALUIT PLUS ONE [Concomitant]
     Indication: MINERAL SUPPLEMENTATION
     Dosage: DAILY
  3. FUROSEMIDE [Concomitant]
     Indication: FLUID RETENTION
     Dosage: 40MG DAILY
  4. FLUOXETINE [Concomitant]
     Indication: PRODUCT USED FOR UNKNOWN INDICATION
     Dosage: 20MG DAILY
  5. HUMIRA [Suspect]
     Indication: RHEUMATOID ARTHRITIS
     Dates: start: 20050401
  6. ADVAIR DISKUS 100/50 [Concomitant]
     Indication: CHRONIC OBSTRUCTIVE PULMONARY DISEASE
     Dosage: 250 -2PUFFS BID
  7. METOFORMIN [Concomitant]
     Indication: DIABETES MELLITUS
  8. METOPROLOL TARTRATE [Concomitant]
     Indication: HYPERTENSION
  9. ISOSORBID [Concomitant]
     Indication: HYPERTENSION
  10. ALBUTEROL [Concomitant]
     Indication: CHRONIC OBSTRUCTIVE PULMONARY DISEASE
  11. LIPITOR [Concomitant]
     Indication: BLOOD CHOLESTEROL INCREASED
     Dosage: 80MG AT HS
  12. GLIPIZIDE [Concomitant]
     Indication: DIABETES MELLITUS
  13. PREDNISONE TAB [Concomitant]
     Indication: RHEUMATOID ARTHRITIS
     Dosage: 10MG DAILY
  14. POTASSIUM HCL [Concomitant]
     Indication: MINERAL SUPPLEMENTATION
  15. PLAVIX [Concomitant]
     Indication: ANTICOAGULANT THERAPY
     Dosage: 75MG DAILY
  16. LISINOPRIL [Concomitant]
     Indication: HYPERTENSION
     Dosage: 40MG DAILY

REACTIONS (2)
  - ABDOMINAL DISCOMFORT [None]
  - DIARRHOEA [None]
